FAERS Safety Report 9386155 (Version 1)
Quarter: 2013Q3

REPORT INFORMATION
  Report Type: Spontaneous
  Country: US (occurrence: US)
  Receive Date: 20130707
  Receipt Date: 20130707
  Transmission Date: 20140515
  Serious: No
  Sender: FDA-Public Use
  Company Number: US-ALLERGAN-1305914US

PATIENT
  Age: 71 Year
  Sex: Male

DRUGS (2)
  1. LUMIGAN? 0.01% [Suspect]
     Indication: GLAUCOMA
     Dosage: 2 GTT, QPM
     Route: 047
  2. ATENOLOL [Concomitant]
     Indication: HYPERTENSION
     Dosage: 12 MG, QD
     Route: 048
     Dates: start: 201302

REACTIONS (1)
  - Eyelid ptosis [Not Recovered/Not Resolved]
